FAERS Safety Report 12337420 (Version 2)
Quarter: 2016Q2

REPORT INFORMATION
  Report Type: Spontaneous
  Country: AT (occurrence: AT)
  Receive Date: 20160505
  Receipt Date: 20160526
  Transmission Date: 20160815
  Serious: Yes (Death, Other)
  Sender: FDA-Public Use
  Company Number: AT-GILEAD-2016-0211466

PATIENT
  Age: 71 Year
  Sex: Female

DRUGS (2)
  1. ZYDELIG [Suspect]
     Active Substance: IDELALISIB
     Indication: B-CELL LYMPHOMA
  2. ZYDELIG [Suspect]
     Active Substance: IDELALISIB
     Indication: NON-HODGKIN^S LYMPHOMA
     Dosage: UNK
     Route: 065
     Dates: start: 20150916

REACTIONS (5)
  - Oesophageal ulcer [Unknown]
  - Tracheal ulcer [Unknown]
  - Diarrhoea [Unknown]
  - Death [Fatal]
  - Large intestinal ulcer [Unknown]

NARRATIVE: CASE EVENT DATE: 20160426
